FAERS Safety Report 7969324-5 (Version None)
Quarter: 2011Q4

REPORT INFORMATION
  Report Type: 
  Country: None (occurrence: None)
  Receive Date: 20111209
  Receipt Date: 20111130
  Transmission Date: 20120403
  Serious: Yes (Other)
  Sender: FDA-Public Use
  Company Number: BR-ASTRAZENECA-2011SE32154

PATIENT
  Age: 22 Year
  Sex: Female
  Weight: 47 kg

DRUGS (2)
  1. SYMBICORT [Suspect]
     Dosage: 160/4.5 MCG , UP TO THREE EXTRA DOSES
     Route: 055
     Dates: start: 20110401, end: 20110101
  2. SYMBICORT [Suspect]
     Indication: ASTHMA
     Dosage: 160/4.5 MCG ONCE DAILY
     Route: 055
     Dates: start: 20110401, end: 20110901

REACTIONS (2)
  - DRUG DOSE OMISSION [None]
  - DYSPNOEA [None]
